FAERS Safety Report 13923495 (Version 1)
Quarter: 2017Q3

REPORT INFORMATION
  Report Type: Spontaneous
  Country: US (occurrence: US)
  Receive Date: 20170830
  Receipt Date: 20170830
  Transmission Date: 20171127
  Serious: No
  Sender: FDA-Public Use
  Company Number: None

PATIENT

DRUGS (1)
  1. TRELSTAR [Suspect]
     Active Substance: TRIPTORELIN PAMOATE
     Dosage: ?          OTHER FREQUENCY:ONCE;?
     Route: 030
     Dates: start: 20170829, end: 20170829

REACTIONS (2)
  - Accidental exposure to product [None]
  - Syringe issue [None]

NARRATIVE: CASE EVENT DATE: 20170829
